FAERS Safety Report 10606322 (Version 1)
Quarter: 2014Q4

REPORT INFORMATION
  Report Type: Spontaneous
  Country: US (occurrence: None)
  Receive Date: 20141124
  Receipt Date: 20141124
  Transmission Date: 20150529
  Serious: Yes (Hospitalization)
  Sender: FDA-Public Use
  Company Number: None

PATIENT
  Age: 61 Year
  Sex: Male
  Weight: 59 kg

DRUGS (12)
  1. CYANOCOBALAMIN. [Concomitant]
     Active Substance: CYANOCOBALAMIN
  2. TRIAZOLAM. [Concomitant]
     Active Substance: TRIAZOLAM
  3. CYMBALTA [Concomitant]
     Active Substance: DULOXETINE HYDROCHLORIDE
  4. ASCORBIC ACID. [Concomitant]
     Active Substance: ASCORBIC ACID
  5. DULOXETINE [Concomitant]
     Active Substance: DULOXETINE
  6. LEVOCETIRIZINE [Concomitant]
     Active Substance: LEVOCETIRIZINE
  7. FENTANYL. [Suspect]
     Active Substance: FENTANYL
     Indication: PAIN
     Dosage: CHRONIC WITH RECENT INCREASE ?100MG?Q3DAY?TOPICALLY
     Route: 061
  8. DIAZEPAM. [Concomitant]
     Active Substance: DIAZEPAM
  9. MAG OX [Concomitant]
     Active Substance: MAGNESIUM OXIDE
  10. OLANZAPINE. [Concomitant]
     Active Substance: OLANZAPINE
  11. ATORVASTATIN [Concomitant]
     Active Substance: ATORVASTATIN
  12. BUPROPION [Concomitant]
     Active Substance: BUPROPION

REACTIONS (9)
  - Hypotension [None]
  - Somnolence [None]
  - Leukocytosis [None]
  - Mental status changes [None]
  - Tachycardia [None]
  - Lethargy [None]
  - Overdose [None]
  - Asthenia [None]
  - Renal failure [None]

NARRATIVE: CASE EVENT DATE: 20140626
